FAERS Safety Report 9809166 (Version 2)
Quarter: 2014Q1

REPORT INFORMATION
  Report Type: Spontaneous
  Country: US (occurrence: US)
  Receive Date: 20140110
  Receipt Date: 20140221
  Transmission Date: 20141002
  Serious: Yes (Other)
  Sender: FDA-Public Use
  Company Number: US-ASTELLAS-2014US000279

PATIENT
  Age: 64 Year
  Sex: Female
  Weight: 46 kg

DRUGS (2)
  1. MYRBETRIQ [Suspect]
     Indication: URGE INCONTINENCE
     Dosage: 25 MG, UID/QD
     Route: 048
     Dates: start: 20131202
  2. VESICARE [Suspect]
     Indication: URGE INCONTINENCE
     Dosage: 5 MG, UID/QD
     Route: 048
     Dates: end: 20131202

REACTIONS (2)
  - Upper limb fracture [Unknown]
  - Constipation [Recovered/Resolved]
